FAERS Safety Report 14037177 (Version 3)
Quarter: 2017Q4

REPORT INFORMATION
  Report Type: Report from Study
  Country: None (occurrence: CA)
  Receive Date: 20171004
  Receipt Date: 20171027
  Transmission Date: 20180321
  Serious: Yes (Hospitalization, Other)
  Sender: FDA-Public Use
  Company Number: CA-ABBVIE-17K-028-2118130-00

PATIENT
  Sex: Male
  Weight: 55 kg

DRUGS (1)
  1. HUMIRA [Suspect]
     Active Substance: ADALIMUMAB
     Indication: CROHN^S DISEASE
     Route: 058
     Dates: start: 20140613

REACTIONS (5)
  - Cortisol decreased [Recovering/Resolving]
  - Procedural complication [Recovered/Resolved]
  - Intestinal perforation [Recovered/Resolved]
  - Gastrointestinal disorder [Recovered/Resolved]
  - Adrenal disorder [Recovering/Resolving]

NARRATIVE: CASE EVENT DATE: 2017
